FAERS Safety Report 5388843-1 (Version None)
Quarter: 2007Q3

REPORT INFORMATION
  Report Type: 
  Country: None (occurrence: None)
  Receive Date: 20070716
  Receipt Date: 20070706
  Transmission Date: 20080115
  Serious: Yes (Other)
  Sender: FDA-Public Use
  Company Number: US-SHR-US-2007-025171

PATIENT
  Age: 38 Year
  Sex: Female
  Weight: 64 kg

DRUGS (4)
  1. MIRENA [Suspect]
     Indication: CONTRACEPTION
     Dosage: 20 A?G/DAY, CONT
     Route: 015
     Dates: start: 20070409, end: 20070101
  2. IRON [Concomitant]
  3. M.V.I. [Concomitant]
  4. INDOCIN [Concomitant]
     Indication: GOUT
     Dosage: UNK, AS REQ'D

REACTIONS (3)
  - ABDOMINAL PAIN [None]
  - IUD MIGRATION [None]
  - PROCEDURAL PAIN [None]
